FAERS Safety Report 22161384 (Version 5)
Quarter: 2023Q2

REPORT INFORMATION
  Report Type: Report from Study
  Country: US (occurrence: US)
  Receive Date: 20230331
  Receipt Date: 20230518
  Transmission Date: 20230722
  Serious: Yes (Hospitalization)
  Sender: FDA-Public Use
  Company Number: US-PFIZER INC-PV202300056254

PATIENT
  Age: 3 Year
  Sex: Female
  Weight: 24.4 kg

DRUGS (7)
  1. LORLATINIB [Suspect]
     Active Substance: LORLATINIB
     Indication: Neuroblastoma
     Dosage: 90 MG, 1X/DAY
     Route: 048
     Dates: start: 20230206, end: 20230320
  2. TOPOTECAN HYDROCHLORIDE [Suspect]
     Active Substance: TOPOTECAN HYDROCHLORIDE
     Indication: Neuroblastoma
     Dosage: 0.53 MG, QDAY ON DAYS 1-5
     Route: 042
     Dates: start: 20230206, end: 20230210
  3. CYCLOPHOSPHAMIDE [Suspect]
     Active Substance: CYCLOPHOSPHAMIDE
     Indication: Neuroblastoma
     Dosage: 180 MG, QDAY ON DAYS 1-5
     Route: 042
     Dates: start: 20230206, end: 20230210
  4. DINUTUXIMAB [Suspect]
     Active Substance: DINUTUXIMAB
     Indication: Neuroblastoma
     Dosage: 14.4 MG  QD DAYS 2-5
     Route: 042
     Dates: start: 20230321, end: 20230323
  5. DINUTUXIMAB [Suspect]
     Active Substance: DINUTUXIMAB
     Dosage: 14.4 MG  QD DAYS 2-5
     Route: 042
     Dates: start: 20230324, end: 20230326
  6. IRINOTECAN [Concomitant]
     Active Substance: IRINOTECAN
     Indication: Neuroblastoma
     Dosage: 41 MG  QD DAYS 1-5
     Route: 042
     Dates: start: 20230320, end: 20230324
  7. TEMOZOLOMIDE [Concomitant]
     Active Substance: TEMOZOLOMIDE
     Indication: Neuroblastoma
     Dosage: 80 MG, QD DAYS 1-5
     Route: 042
     Dates: start: 20230320, end: 20230324

REACTIONS (3)
  - Acute kidney injury [Recovered/Resolved]
  - Hypoxia [Recovered/Resolved]
  - Blood creatinine increased [Recovered/Resolved]

NARRATIVE: CASE EVENT DATE: 20230322
